FAERS Safety Report 14417967 (Version 1)
Quarter: 2018Q1

REPORT INFORMATION
  Report Type: Other
  Country: None (occurrence: US)
  Receive Date: 20180122
  Receipt Date: 20180122
  Transmission Date: 20180509
  Serious: No
  Sender: FDA-Public Use
  Company Number: US-INTERCEPT-PMOCA2017001139

PATIENT

DRUGS (2)
  1. OCALIVA [Suspect]
     Active Substance: OBETICHOLIC ACID
  2. URSO [Concomitant]
     Active Substance: URSODIOL

REACTIONS (2)
  - Blood alkaline phosphatase increased [Unknown]
  - Pruritus [Unknown]
